FAERS Safety Report 14601054 (Version 2)
Quarter: 2018Q2

REPORT INFORMATION
  Report Type: Spontaneous
  Country: FR (occurrence: FR)
  Receive Date: 20180305
  Receipt Date: 20180406
  Transmission Date: 20180711
  Serious: Yes (Hospitalization)
  Sender: FDA-Public Use
  Company Number: FR-AUROBINDO-AUR-APL-2018-011383

PATIENT
  Age: 27 Year
  Sex: Female
  Weight: 102 kg

DRUGS (9)
  1. TRAMADOL. [Suspect]
     Active Substance: TRAMADOL
     Dosage: DOSAGE FORM: UNSPECIFIED ()
     Route: 065
     Dates: start: 20141124
  2. PARACETAMOL [Suspect]
     Active Substance: ACETAMINOPHEN
     Dosage: DOSAGE FORM: UNSPECIFIED ()
     Route: 065
     Dates: start: 20141227
  3. TRAMADOL. [Suspect]
     Active Substance: TRAMADOL
     Indication: ANALGESIC INTERVENTION SUPPORTIVE THERAPY
     Dosage: UNK
     Route: 065
     Dates: start: 20141127
  4. SUFENTANIL [Suspect]
     Active Substance: SUFENTANIL
     Indication: PRODUCT USED FOR UNKNOWN INDICATION
     Dosage: UNK
     Route: 042
     Dates: start: 20141127
  5. PARACETAMOL [Suspect]
     Active Substance: ACETAMINOPHEN
     Indication: ANALGESIC INTERVENTION SUPPORTIVE THERAPY
     Dosage: UNK
     Route: 065
     Dates: start: 20141127
  6. CLINDAMYCIN. [Suspect]
     Active Substance: CLINDAMYCIN
     Indication: PROPHYLAXIS
     Dosage: UNK
     Route: 042
     Dates: start: 20141127, end: 20141129
  7. PROPOFOL. [Suspect]
     Active Substance: PROPOFOL
     Dosage: DOSAGE FORM: UNSPECIFIED ()
     Route: 042
     Dates: start: 20141124
  8. SUFENTANIL [Suspect]
     Active Substance: SUFENTANIL
     Dosage: DOSAGE FORM: UNSPECIFIED ()
     Route: 042
     Dates: start: 20141227
  9. PROPOFOL. [Suspect]
     Active Substance: PROPOFOL
     Indication: PAIN
     Dosage: UNK
     Route: 042
     Dates: start: 20141127

REACTIONS (2)
  - Eosinophilia [Recovered/Resolved]
  - Rash generalised [Recovered/Resolved]

NARRATIVE: CASE EVENT DATE: 20141127
